FAERS Safety Report 9643598 (Version 1)
Quarter: 2013Q4

REPORT INFORMATION
  Report Type: Report from Study
  Country: DE (occurrence: DE)
  Receive Date: 20131024
  Receipt Date: 20131024
  Transmission Date: 20140711
  Serious: Yes (Death)
  Sender: FDA-Public Use
  Company Number: DE-GLAXOSMITHKLINE-B0787877C

PATIENT
  Sex: Female

DRUGS (4)
  1. PAZOPANIB [Suspect]
     Indication: GASTRIC CANCER
     Route: 065
     Dates: start: 20120228
  2. 5-FU [Suspect]
     Indication: GASTRIC CANCER
     Route: 065
     Dates: start: 20120217
  3. OXALIPLATIN [Suspect]
     Indication: GASTRIC CANCER
     Route: 065
     Dates: start: 20120217
  4. LEUCOVORIN [Suspect]
     Indication: GASTRIC CANCER
     Route: 065
     Dates: start: 20120217

REACTIONS (1)
  - Pneumonia [Fatal]
